FAERS Safety Report 15297103 (Version 1)
Quarter: 2018Q3

REPORT INFORMATION
  Report Type: Spontaneous
  Country: US (occurrence: US)
  Receive Date: 20180820
  Receipt Date: 20180820
  Transmission Date: 20181010
  Serious: Yes (Other)
  Sender: FDA-Public Use
  Company Number: US-SA-2018SA226574

PATIENT
  Sex: Male

DRUGS (7)
  1. TAXOTERE [Suspect]
     Active Substance: DOCETAXEL
  2. LEUPRORELIN ACETATE [Suspect]
     Active Substance: LEUPROLIDE ACETATE
  3. BICALUTAMIDE. [Suspect]
     Active Substance: BICALUTAMIDE
     Indication: PROSTATE CANCER
     Route: 048
  4. ABIRATERONE ACETATE. [Suspect]
     Active Substance: ABIRATERONE ACETATE
  5. XTANDI [Suspect]
     Active Substance: ENZALUTAMIDE
  6. NILANDRON [Suspect]
     Active Substance: NILUTAMIDE
  7. PROVENGE [Suspect]
     Active Substance: SIPULEUCEL-T

REACTIONS (3)
  - Metastases to spinal cord [Unknown]
  - Spinal cord compression [Unknown]
  - Disease progression [Unknown]
